FAERS Safety Report 6730515-2 (Version None)
Quarter: 2010Q2

REPORT INFORMATION
  Report Type: 
  Country: None (occurrence: None)
  Receive Date: 20100518
  Receipt Date: 20100512
  Transmission Date: 20101027
  Serious: Yes (Other)
  Sender: FDA-Public Use
  Company Number: US-JNJFOC-20100505564

PATIENT
  Sex: Female
  Weight: 68.04 kg

DRUGS (2)
  1. TOPAMAX [Suspect]
     Indication: MIGRAINE PROPHYLAXIS
     Route: 048
  2. HYDROXYCUT [Concomitant]
     Indication: WEIGHT DECREASED
     Route: 048

REACTIONS (3)
  - BACK PAIN [None]
  - PAIN [None]
  - PANCREATIC ENZYMES INCREASED [None]
